FAERS Safety Report 19809326 (Version 3)
Quarter: 2021Q4

REPORT INFORMATION
  Report Type: Report from Study
  Country: AU (occurrence: AU)
  Receive Date: 20210908
  Receipt Date: 20211005
  Transmission Date: 20220303
  Serious: Yes (Life-Threatening, Hospitalization)
  Sender: FDA-Public Use
  Company Number: AU-PFIZER INC-202101134531

PATIENT
  Weight: 81.5 kg

DRUGS (9)
  1. GEMTUZUMAB OZOGAMICIN [Suspect]
     Active Substance: GEMTUZUMAB OZOGAMICIN
     Indication: Acute myeloid leukaemia
     Dosage: 5 MG (OTHER)
     Route: 042
     Dates: start: 20210807, end: 20210813
  2. CYTARABINE [Suspect]
     Active Substance: CYTARABINE
     Indication: Acute myeloid leukaemia
     Dosage: 200 ML, 2X/DAY
     Route: 042
     Dates: start: 20210802, end: 20210814
  3. MITOXANTRONE [Suspect]
     Active Substance: MITOXANTRONE HYDROCHLORIDE
     Indication: Acute myeloid leukaemia
     Dosage: 12 MG/M2, 1X/DAY
     Route: 042
     Dates: start: 20210804, end: 20210807
  4. DIAZEPAM [Concomitant]
     Active Substance: DIAZEPAM
     Indication: Urinary retention
     Dosage: 5 MG, AS NEEDED
     Dates: start: 20210806, end: 20210828
  5. MORPHINE [Concomitant]
     Active Substance: MORPHINE
     Indication: Pain
     Dosage: 10 MG/ML (OTHER) (EVERY 15 MIN AS NEEDED)
     Dates: start: 20210816
  6. KETAMINE [Concomitant]
     Active Substance: KETAMINE
     Indication: Pain
     Dosage: 5 MG/KG (OTHER)
     Dates: start: 20210821, end: 20210829
  7. PANTOPRAZOLE [Concomitant]
     Active Substance: PANTOPRAZOLE
     Indication: Abdominal pain lower
     Dosage: 40 MG, 2X/DAY
     Dates: start: 20210819
  8. PANTOPRAZOLE [Concomitant]
     Active Substance: PANTOPRAZOLE
     Indication: Lower gastrointestinal haemorrhage
  9. ACETAMINOPHEN [Concomitant]
     Active Substance: ACETAMINOPHEN
     Indication: Pain
     Dosage: 790 MG, AS NEEDED
     Dates: start: 20210802

REACTIONS (5)
  - Mucormycosis [Not Recovered/Not Resolved]
  - Gastrointestinal necrosis [Not Recovered/Not Resolved]
  - Acute kidney injury [Not Recovered/Not Resolved]
  - Blood bilirubin increased [Not Recovered/Not Resolved]
  - Neutrophil count decreased [Not Recovered/Not Resolved]

NARRATIVE: CASE EVENT DATE: 20210829
